FAERS Safety Report 6263386-1 (Version None)
Quarter: 2009Q3

REPORT INFORMATION
  Report Type: 
  Country: None (occurrence: None)
  Receive Date: 20090710
  Receipt Date: 20081006
  Transmission Date: 20100115
  Serious: No
  Sender: FDA-Public Use
  Company Number: A0748575A

PATIENT
  Age: 6 Year
  Sex: Female

DRUGS (2)
  1. FLOVENT [Suspect]
     Indication: ASTHMA
     Dosage: 2SPR TWICE PER DAY
     Route: 055
     Dates: start: 20080919, end: 20080919
  2. ALBUTEROL [Concomitant]

REACTIONS (6)
  - COUGH [None]
  - DISCOMFORT [None]
  - DRUG INEFFECTIVE [None]
  - ILL-DEFINED DISORDER [None]
  - PRODUCTIVE COUGH [None]
  - WHEEZING [None]
